FAERS Safety Report 25845180 (Version 3)
Quarter: 2025Q4

REPORT INFORMATION
  Report Type: Report from Study
  Country: EU (occurrence: EU)
  Receive Date: 20250925
  Receipt Date: 20251010
  Transmission Date: 20260117
  Serious: Yes (Hospitalization)
  Sender: BIOGEN
  Company Number: EU-BIOGEN-2025BI01324886

PATIENT
  Age: 21 Year
  Sex: Male
  Weight: 110 kg

DRUGS (7)
  1. OMAVELOXOLONE [Suspect]
     Active Substance: OMAVELOXOLONE
     Indication: Friedreich^s ataxia
     Dosage: PLANNED POSOLOGY: 150 MG ONCE PER DAY (3 CAPSULES OF 50 MG). PLANNED DURATION: 12 MONTHS
     Route: 050
     Dates: start: 20240620, end: 20250924
  2. OMAVELOXOLONE [Suspect]
     Active Substance: OMAVELOXOLONE
     Route: 050
     Dates: start: 20240701
  3. CHOLECALCIFEROL [Concomitant]
     Active Substance: CHOLECALCIFEROL
     Indication: Product used for unknown indication
     Dosage: 100 000 IU/2 ML ORAL SOLUTION - ORAL 1 VIAL AT 08:00. 1ST DAY OF EVERY 3 MONTHS DURING 395 DAYS 0...
     Route: 050
  4. POLYETHYLENE GLYCOLS [Concomitant]
     Active Substance: POLYETHYLENE GLYCOLS
     Indication: Product used for unknown indication
     Dosage: (4000) 10G POWDER FOR ORAL SOLUTION - ORAL 1 BAG AT 19:00. EVERT DAY DURING 365 DAYS - BACKGROUND...
     Route: 050
  5. RABEPRAZOLE SODIUM [Concomitant]
     Active Substance: RABEPRAZOLE SODIUM
     Indication: Impaired gastric emptying
     Dosage: 20 MG GASTROPARESIS - ORAL 1 TABLET AT 19:00 - EVERY DAY DURING 365 DAYS - BACKGROUND TREATMENT
     Route: 050
  6. SERTRALINE [Concomitant]
     Active Substance: SERTRALINE HYDROCHLORIDE
     Indication: Product used for unknown indication
     Dosage: (HYDROCHLORIDE) 50 MG CAPSULE - ORAL 1 CAPSULE AT 19:00 - EVERY DAY DURING 365 DAYS - BACKGROUND ...
     Route: 050
  7. ARKORELAX SOMMEIL FLASH [Concomitant]
     Indication: Product used for unknown indication
     Dosage: 25 MG CAPSULE ORAL - 1 CAPSULE AT 08:00 - EVERY DAY DURING 365 DAYS - BACKGROUND TREATMENT
     Route: 050

REACTIONS (7)
  - Atrial fibrillation [Recovered/Resolved]
  - Blood glucose decreased [Unknown]
  - Infection [Unknown]
  - Brain natriuretic peptide increased [Unknown]
  - Alanine aminotransferase increased [Unknown]
  - Blood triglycerides increased [Unknown]
  - High density lipoprotein decreased [Unknown]

NARRATIVE: CASE EVENT DATE: 20240926
